FAERS Safety Report 10378223 (Version 1)
Quarter: 2014Q3

REPORT INFORMATION
  Report Type: Spontaneous
  Country: IN (occurrence: None)
  Receive Date: 20140807
  Receipt Date: 20140807
  Transmission Date: 20150326
  Serious: Yes (Life-Threatening, Other)
  Sender: FDA-Public Use
  Company Number: 2014HINLIT0688

PATIENT
  Age: 19 Year
  Sex: Male

DRUGS (12)
  1. LITHIUM [Suspect]
     Active Substance: LITHIUM CARBONATE
     Indication: DELUSION
  2. OLANZAPINE (OLANZAPINE) [Suspect]
     Active Substance: OLANZAPINE
     Indication: DELUSION
  3. CLONAZEPAM (CLONAZEPAM) (CLONAZEPAM) [Suspect]
     Active Substance: CLONAZEPAM
     Indication: HALLUCINATION
  4. CLONAZEPAM (CLONAZEPAM) (CLONAZEPAM) [Suspect]
     Active Substance: CLONAZEPAM
     Indication: DELUSION
  5. RISPERIDONE (RISPERIDONE) [Suspect]
     Active Substance: RISPERIDONE
     Indication: HALLUCINATION
  6. ONDANSETRON. [Suspect]
     Active Substance: ONDANSETRON
     Indication: HALLUCINATION
  7. LITHIUM [Suspect]
     Active Substance: LITHIUM CARBONATE
     Indication: HALLUCINATION
  8. VALPROATE [Suspect]
     Active Substance: VALPROIC ACID
     Indication: HALLUCINATION
  9. VALPROATE [Suspect]
     Active Substance: VALPROIC ACID
     Indication: DELUSION
  10. OLANZAPINE (OLANZAPINE) [Suspect]
     Active Substance: OLANZAPINE
     Indication: HALLUCINATION
  11. RISPERIDONE (RISPERIDONE) [Suspect]
     Active Substance: RISPERIDONE
     Indication: DELUSION
  12. ONDANSETRON. [Suspect]
     Active Substance: ONDANSETRON
     Indication: DELUSION

REACTIONS (8)
  - Neuroleptic malignant syndrome [None]
  - Diarrhoea [None]
  - Hypophagia [None]
  - Unresponsive to stimuli [None]
  - Serotonin syndrome [None]
  - Idiosyncratic drug reaction [None]
  - Immobile [None]
  - Gastrointestinal sounds abnormal [None]
